FAERS Safety Report 17474939 (Version 1)
Quarter: 2020Q1

REPORT INFORMATION
  Report Type: Spontaneous
  Country: US (occurrence: US)
  Receive Date: 20200218
  Receipt Date: 20200218
  Transmission Date: 20200409
  Serious: No
  Sender: FDA-Public Use
  Company Number: None

PATIENT
  Age: 35 Year
  Sex: Male

DRUGS (1)
  1. COSENTYX [Suspect]
     Active Substance: SECUKINUMAB
     Dosage: OTHER
     Route: 058
     Dates: start: 201901

REACTIONS (4)
  - Inappropriate schedule of product administration [None]
  - Product dispensing issue [None]
  - Psoriatic arthropathy [None]
  - Condition aggravated [None]

NARRATIVE: CASE EVENT DATE: 20200218
